FAERS Safety Report 11170539 (Version 2)
Quarter: 2015Q3

REPORT INFORMATION
  Report Type: Spontaneous
  Country: SK (occurrence: SK)
  Receive Date: 20150608
  Receipt Date: 20150708
  Transmission Date: 20151125
  Serious: Yes (Other)
  Sender: FDA-Public Use
  Company Number: SK-BIOGENIDEC-2015BI073953

PATIENT
  Sex: Male

DRUGS (13)
  1. TYSABRI [Suspect]
     Active Substance: NATALIZUMAB
     Indication: MULTIPLE SCLEROSIS
     Route: 042
     Dates: start: 20120507, end: 20150520
  2. EUTHYROX [Concomitant]
     Active Substance: LEVOTHYROXINE SODIUM
  3. QUAMATEL [Concomitant]
  4. XANAX [Concomitant]
     Active Substance: ALPRAZOLAM
  5. BETASERC [Concomitant]
     Active Substance: BETAHISTINE
  6. PROSTAKAN FORTE [Concomitant]
  7. VITAMIN D [Concomitant]
     Active Substance: CHOLECALCIFEROL
  8. OXAZEPAM. [Concomitant]
     Active Substance: OXAZEPAM
  9. FAMOSAN [Concomitant]
  10. ANOPYRIN [Concomitant]
     Active Substance: ASPIRIN
  11. PREDNISONE. [Concomitant]
     Active Substance: PREDNISONE
  12. HYPNOGEN [Concomitant]
     Active Substance: ZOLPIDEM\ZOLPIDEM TARTRATE
  13. PENESTER [Concomitant]

REACTIONS (1)
  - Laryngeal squamous cell carcinoma [Unknown]

NARRATIVE: CASE EVENT DATE: 20150512
